FAERS Safety Report 4684439-5 (Version None)
Quarter: 2005Q2

REPORT INFORMATION
  Report Type: 
  Country: None (occurrence: None)
  Receive Date: 20050531
  Receipt Date: 20040420
  Transmission Date: 20051028
  Serious: Yes (Hospitalization)
  Sender: FDA-Public Use
  Company Number: 200413013US

PATIENT
  Age: 33 Year
  Sex: Female

DRUGS (6)
  1. LOVENOX [Suspect]
     Indication: POSTOPERATIVE CARE
     Dosage: 40 MG QD SC
     Route: 058
     Dates: start: 20040319, end: 20040321
  2. LEVAQUIN [Concomitant]
  3. SALBUTAMOL (PROVENTIL) [Concomitant]
  4. NALBUPHINE [Concomitant]
  5. PROMETHAZINE HCL [Concomitant]
  6. TYLENOL [Concomitant]

REACTIONS (4)
  - ABDOMINAL PAIN [None]
  - HAEMATOMA [None]
  - PYREXIA [None]
  - RETROPERITONEAL HAEMORRHAGE [None]
